FAERS Safety Report 14922617 (Version 3)
Quarter: 2020Q4

REPORT INFORMATION
  Report Type: Report from Study
  Country: US (occurrence: US)
  Receive Date: 20180522
  Receipt Date: 20201228
  Transmission Date: 20210113
  Serious: No
  Sender: FDA-Public Use
  Company Number: PHHY2018US005126

PATIENT
  Sex: Female

DRUGS (2)
  1. CLONAZEPAM. [Suspect]
     Active Substance: CLONAZEPAM
     Indication: PRODUCT USED FOR UNKNOWN INDICATION
     Dosage: UNK
     Route: 065
  2. XOLAIR [Suspect]
     Active Substance: OMALIZUMAB
     Indication: IDIOPATHIC URTICARIA
     Dosage: 300 MG, EVERY 4 WEEKS
     Route: 058

REACTIONS (10)
  - Fatigue [Unknown]
  - Intentional product misuse [Unknown]
  - Back pain [Unknown]
  - Off label use [Unknown]
  - Ear pruritus [Unknown]
  - Lymphoid tissue hyperplasia [Unknown]
  - Pharyngitis [Unknown]
  - Anxiety [Unknown]
  - Arthralgia [Unknown]
  - Depression [Unknown]
